FAERS Safety Report 7793831-1 (Version None)
Quarter: 2011Q4

REPORT INFORMATION
  Report Type: 
  Country: None (occurrence: None)
  Receive Date: 20111004
  Receipt Date: 20110922
  Transmission Date: 20120403
  Serious: Yes (Hospitalization)
  Sender: FDA-Public Use
  Company Number: CO-SP-2011-09214

PATIENT
  Sex: Male

DRUGS (1)
  1. TICE BCG [Suspect]
     Indication: PRODUCT USED FOR UNKNOWN INDICATION
     Dosage: NOT REPORTED
     Route: 043

REACTIONS (2)
  - ESCHERICHIA INFECTION [None]
  - PYREXIA [None]
